FAERS Safety Report 18503803 (Version 1)
Quarter: 2020Q4

REPORT INFORMATION
  Report Type: Spontaneous
  Country: DE (occurrence: DE)
  Receive Date: 20201113
  Receipt Date: 20201113
  Transmission Date: 20210114
  Serious: Yes (Other)
  Sender: FDA-Public Use
  Company Number: DE-PFIZER INC-2020442918

PATIENT
  Age: 70 Year
  Sex: Male
  Weight: 66 kg

DRUGS (18)
  1. IFOSFAMIDE. [Suspect]
     Active Substance: IFOSFAMIDE
     Indication: DIFFUSE LARGE B-CELL LYMPHOMA
     Dosage: (4TH CYCLE OF TREATMENT ACCORDING TO R-IMVP-16 REGIMEN, 5 CYCLES (IFOSFAMIDE 75%))
     Route: 065
     Dates: start: 201811, end: 201902
  2. BICNU [Suspect]
     Active Substance: CARMUSTINE
     Indication: DIFFUSE LARGE B-CELL LYMPHOMA
     Dosage: (3RD LINE THERAPY ACCORDING TO HD BEAM REGIMEN WITH AUTO SCT, 1 CYCLE)
     Route: 065
     Dates: start: 201604
  3. ETOPOSIDE. [Suspect]
     Active Substance: ETOPOSIDE
     Indication: DIFFUSE LARGE B-CELL LYMPHOMA
     Dosage: (3RD LINE THERAPY ACCORDING TO HD BEAM REGIMEN WITH AUTO SCT, 1 CYCLE)
     Route: 065
     Dates: start: 201604
  4. METHOTREXATE SODIUM. [Suspect]
     Active Substance: METHOTREXATE SODIUM
     Indication: DIFFUSE LARGE B-CELL LYMPHOMA
     Dosage: (4TH CYCLE OF TREATMENT ACCORDING TO R-IMVP-16 REGIMEN, 5 CYCLES (IFOSFAMIDE 75%)
     Route: 065
     Dates: start: 201811, end: 201902
  5. VP-16 [Suspect]
     Active Substance: ETOPOSIDE
     Indication: DIFFUSE LARGE B-CELL LYMPHOMA
     Dosage: UNK
     Route: 065
     Dates: start: 201811, end: 201902
  6. VINCRISTINE SULFATE. [Suspect]
     Active Substance: VINCRISTINE SULFATE
     Indication: DIFFUSE LARGE B-CELL LYMPHOMA
     Dosage: (1ST LINE THERAPY ACCORDING TO R-CHOP REGIMEN, 6 CYCLES, AND 2 CYCLES OF RITUXIMAB ASMONOTHERAPY)
     Route: 065
     Dates: start: 200910, end: 201002
  7. BRENTUXIMAB [Suspect]
     Active Substance: BRENTUXIMAB VEDOTIN
     Indication: DIFFUSE LARGE B-CELL LYMPHOMA
     Dosage: 1.8 MG/KG (5TH LINE TREATMENT, 4 CYCLES)
     Route: 065
     Dates: start: 201905, end: 201909
  8. PREDNISONE. [Suspect]
     Active Substance: PREDNISONE
     Indication: DIFFUSE LARGE B-CELL LYMPHOMA
     Dosage: (1ST LINE THERAPY ACCORDING TO R-CHOP REGIMEN, 6 CYCLES, AND 2 CYCLES OF RITUXIMAB ASMONOTHERAPY)
     Route: 065
     Dates: start: 201002, end: 201002
  9. MABTHERA [Suspect]
     Active Substance: RITUXIMAB
     Dosage: (4TH CYCLE OF TREATMENT ACCORDING TO R-IMVP-16 REGIMEN, 5 CYCLES)
     Route: 065
     Dates: start: 201811, end: 201902
  10. MABTHERA [Suspect]
     Active Substance: RITUXIMAB
     Dosage: (2ND LINE THERAPY ACCORDING TO R-GDP REGIMEN, 4 CYCLES)
     Route: 065
     Dates: start: 201512, end: 201602
  11. DOXORUBICIN HCL [Suspect]
     Active Substance: DOXORUBICIN HYDROCHLORIDE
     Indication: DIFFUSE LARGE B-CELL LYMPHOMA
     Dosage: 1ST LINE THERAPY ACCORDING TO R-CHOP REGIMEN, 6 CYCLES, AND 2 CYCLES OF RITUXIMAB AS MONOTHERAPY)
     Route: 065
     Dates: start: 200910, end: 201002
  12. GEMCITABINE HYDROCHLORIDE. [Suspect]
     Active Substance: GEMCITABINE HYDROCHLORIDE
     Indication: DIFFUSE LARGE B-CELL LYMPHOMA
     Dosage: UNK
     Route: 065
     Dates: start: 201512, end: 201602
  13. CISPLATIN. [Suspect]
     Active Substance: CISPLATIN
     Indication: DIFFUSE LARGE B-CELL LYMPHOMA
     Dosage: (2ND LINE THERAPY ACCORDING TO R-GDP REGIMEN, 4 CYCLES)
     Route: 065
     Dates: start: 201512, end: 201602
  14. CYCLOPHOSPHAMIDE. [Suspect]
     Active Substance: CYCLOPHOSPHAMIDE
     Indication: DIFFUSE LARGE B-CELL LYMPHOMA
     Dosage: (1ST LINE THERAPY ACCORDING TO R-CHOP REGIMEN, 6 CYCLES, AND 2 CYCLES OF RITUXIMAB AS MONOTHERAPY)
     Route: 065
     Dates: start: 200910, end: 201002
  15. DEXAMETHASONE. [Suspect]
     Active Substance: DEXAMETHASONE
     Indication: DIFFUSE LARGE B-CELL LYMPHOMA
     Dosage: (2ND LINE THERAPY ACCORDING TO R-GDP REGIMEN, 4 CYCLES)
     Route: 065
     Dates: start: 201512, end: 201602
  16. CYTARABINE. [Suspect]
     Active Substance: CYTARABINE
     Indication: DIFFUSE LARGE B-CELL LYMPHOMA
     Dosage: (3RD LINE THERAPY ACCORDING TO HD BEAM REGIMEN WITH AUTO SCT, 1 CYCLE)
     Route: 065
     Dates: start: 201604
  17. MELPHALAN. [Suspect]
     Active Substance: MELPHALAN
     Indication: DIFFUSE LARGE B-CELL LYMPHOMA
     Dosage: (3RD LINE THERAPY ACCORDING TO HD BEAM REGIMEN WITH AUTO SCT, 1 CYCLE)
     Route: 065
     Dates: start: 201604
  18. MABTHERA [Suspect]
     Active Substance: RITUXIMAB
     Indication: DIFFUSE LARGE B-CELL LYMPHOMA
     Dosage: (1ST LINE THERAPY ACCORDING TO R-CHOP REGIMEN, 6 CYCLES, AND 2 CYCLES OF RITUXIMAB AS MONOTHERAPY)
     Route: 065
     Dates: start: 200910, end: 201002

REACTIONS (3)
  - Adenocarcinoma gastric [Unknown]
  - Second primary malignancy [Unknown]
  - Pancytopenia [Unknown]

NARRATIVE: CASE EVENT DATE: 201002
